FAERS Safety Report 5093987-8 (Version None)
Quarter: 2006Q3

REPORT INFORMATION
  Report Type: 
  Country: None (occurrence: None)
  Receive Date: 20060829
  Receipt Date: 20060829
  Transmission Date: 20061208
  Serious: Yes (Hospitalization)
  Sender: FDA-Public Use
  Company Number: None

PATIENT
  Sex: Female
  Weight: 85 kg

DRUGS (3)
  1. FLUOROURACIL [Suspect]
     Dosage: 2280 MG
     Dates: end: 20060811
  2. CYCLOPHOSPHAMIDE [Suspect]
     Dosage: 2800 MG (100MG/M2 DAILY ON DAYS 1 THROUGH 14)
     Dates: end: 20060818
  3. METHOTREXATE [Suspect]
     Dosage: 152 MG (40MG/M2 IV PUSH ON DAYS 1 AND 8)
     Dates: start: 20060811

REACTIONS (1)
  - PULMONARY EMBOLISM [None]
